FAERS Safety Report 5843343-7 (Version None)
Quarter: 2008Q3

REPORT INFORMATION
  Report Type: 
  Country: None (occurrence: None)
  Receive Date: 20080813
  Receipt Date: 20080813
  Transmission Date: 20090109
  Serious: Yes (Other)
  Sender: FDA-Public Use
  Company Number: A0742421A

PATIENT
  Age: 64 Year
  Sex: Female

DRUGS (19)
  1. ALLI [Suspect]
     Indication: WEIGHT LOSS DIET
     Route: 048
     Dates: start: 20080808, end: 20080812
  2. LEXAPRO [Concomitant]
  3. PREMARIN [Concomitant]
  4. DETROL LA [Concomitant]
  5. ATENOLOL [Concomitant]
  6. ALPRAZOLAM [Concomitant]
  7. NEXIUM [Concomitant]
  8. ACTOS [Concomitant]
  9. BENICAR HCT [Concomitant]
  10. MELOXICAM [Concomitant]
  11. LEVOTHYROXINE SODIUM [Concomitant]
  12. GABAPENTIN [Concomitant]
  13. TYLENOL W/ CODEINE NO. 3 [Concomitant]
  14. POTASSIUM CHLORIDE [Concomitant]
  15. AMBIEN CR [Concomitant]
  16. CRESTOR [Concomitant]
  17. ONE A DAY VITAMIN [Concomitant]
  18. ARICEPT [Concomitant]
  19. EYEDROPS [Concomitant]
     Route: 047

REACTIONS (10)
  - ABDOMINAL PAIN UPPER [None]
  - ASTHENIA [None]
  - BLOOD GLUCOSE DECREASED [None]
  - BLOOD GLUCOSE FLUCTUATION [None]
  - DIABETES MELLITUS [None]
  - DIARRHOEA [None]
  - HYPERHIDROSIS [None]
  - NERVOUSNESS [None]
  - TREMOR [None]
  - VOMITING [None]
